FAERS Safety Report 14945281 (Version 1)
Quarter: 2018Q2

REPORT INFORMATION
  Report Type: Spontaneous
  Country: US (occurrence: US)
  Receive Date: 20180529
  Receipt Date: 20180529
  Transmission Date: 20180711
  Serious: Yes (Other)
  Sender: FDA-Public Use
  Company Number: US-BIODELIVERY SCIENCES INTERNATIONAL-2017BDSI0196

PATIENT
  Age: 39 Year
  Sex: Female
  Weight: 129.84 kg

DRUGS (1)
  1. BUPRENORPHINE. [Suspect]
     Active Substance: BUPRENORPHINE
     Indication: PAIN
     Route: 002
     Dates: start: 2016

REACTIONS (6)
  - Product size issue [Not Recovered/Not Resolved]
  - Drug ineffective [Not Recovered/Not Resolved]
  - Oedema peripheral [Unknown]
  - Drug withdrawal syndrome [Not Recovered/Not Resolved]
  - Gait disturbance [Unknown]
  - Conversion disorder [Unknown]

NARRATIVE: CASE EVENT DATE: 2017
